FAERS Safety Report 4757593-4 (Version None)
Quarter: 2005Q3

REPORT INFORMATION
  Report Type: 
  Country: None (occurrence: None)
  Receive Date: 20050831
  Receipt Date: 20050818
  Transmission Date: 20060218
  Serious: Yes (Other)
  Sender: FDA-Public Use
  Company Number: PHBS2005JP12098

PATIENT
  Age: 76 Year
  Sex: Female

DRUGS (1)
  1. MAPROTILINE HYDROCHLORIDE [Suspect]
     Route: 065

REACTIONS (1)
  - AKINESIA [None]
